FAERS Safety Report 24309279 (Version 1)
Quarter: 2024Q3

REPORT INFORMATION
  Report Type: Spontaneous
  Country: KR (occurrence: KR)
  Receive Date: 20240911
  Receipt Date: 20240911
  Transmission Date: 20241017
  Serious: Yes (Death)
  Sender: MALLINCKRODT
  Company Number: KR-MALLINCKRODT-MNK202405496

PATIENT

DRUGS (1)
  1. NITRIC OXIDE [Suspect]
     Active Substance: NITRIC OXIDE
     Indication: Newborn persistent pulmonary hypertension
     Dosage: UNKNOWN
     Route: 055
     Dates: start: 20240829, end: 20240830

REACTIONS (3)
  - Newborn persistent pulmonary hypertension [Fatal]
  - Condition aggravated [Fatal]
  - Product use issue [Unknown]

NARRATIVE: CASE EVENT DATE: 20240801
